FAERS Safety Report 5717194-8 (Version None)
Quarter: 2008Q2

REPORT INFORMATION
  Report Type: 
  Country: None (occurrence: None)
  Receive Date: 20080424
  Receipt Date: 20080415
  Transmission Date: 20081010
  Serious: Yes (Life-Threatening, Hospitalization)
  Sender: FDA-Public Use
  Company Number: FR-PFIZER INC-2008033717

PATIENT
  Sex: Female

DRUGS (15)
  1. ALDACTONE [Suspect]
     Route: 048
     Dates: start: 20071214, end: 20080117
  2. AMLOR [Suspect]
     Route: 048
  3. RAMIPRIL [Suspect]
     Route: 048
  4. FUROSEMIDE [Suspect]
     Route: 048
  5. ACEBUTOLOL [Suspect]
     Route: 048
  6. CLOPIDOGREL [Suspect]
     Route: 048
  7. ACETYLSALICYLATE LYSINE [Suspect]
     Route: 048
  8. PRAVASTATIN [Suspect]
     Route: 048
  9. MOLSIDOMINE [Suspect]
     Route: 048
     Dates: start: 20071214, end: 20080117
  10. MACROGOL [Suspect]
     Route: 048
  11. OSTRAM-VIT.D3 [Suspect]
     Route: 048
  12. SERETIDE [Suspect]
     Route: 055
  13. ALENDRONATE SODIUM [Suspect]
     Route: 048
  14. ALLOPURINOL [Suspect]
     Route: 048
  15. INSULIN [Concomitant]
     Route: 058

REACTIONS (3)
  - BRADYCARDIA [None]
  - HYPERKALAEMIA [None]
  - RENAL FAILURE [None]
